FAERS Safety Report 14880469 (Version 2)
Quarter: 2018Q2

REPORT INFORMATION
  Report Type: Spontaneous
  Country: US (occurrence: US)
  Receive Date: 20180511
  Receipt Date: 20180608
  Transmission Date: 20180711
  Serious: No
  Sender: FDA-Public Use
  Company Number: US-GLAXOSMITHKLINE-US2018077993

PATIENT
  Sex: Male

DRUGS (1)
  1. FLONASE SENSIMIST ALLERGY RELIEF [Suspect]
     Active Substance: FLUTICASONE FUROATE
     Indication: PRODUCT USED FOR UNKNOWN INDICATION
     Dosage: UNK

REACTIONS (7)
  - Underdose [Unknown]
  - Sinus pain [Unknown]
  - Swelling face [Recovered/Resolved]
  - Eye swelling [Recovered/Resolved]
  - Eye pain [Recovered/Resolved]
  - Product quality issue [Unknown]
  - Headache [Unknown]
